FAERS Safety Report 4993396-3 (Version None)
Quarter: 2006Q2

REPORT INFORMATION
  Report Type: 
  Country: None (occurrence: None)
  Receive Date: 20060505
  Receipt Date: 20060427
  Transmission Date: 20061013
  Serious: Yes (Hospitalization)
  Sender: FDA-Public Use
  Company Number: FR-JNJFOC-20060406000

PATIENT
  Age: 82 Year
  Sex: Female

DRUGS (6)
  1. REMINYL [Suspect]
     Route: 048
  2. PRETERAX [Suspect]
     Route: 048
     Dates: start: 20051215, end: 20060319
  3. PRETERAX [Suspect]
     Route: 048
     Dates: start: 20051215, end: 20060319
  4. OGAST [Suspect]
     Indication: DRUG USE FOR UNKNOWN INDICATION
     Route: 048
  5. MEDIATENSYL [Suspect]
     Route: 048
  6. EQUANIL [Suspect]
     Indication: DRUG USE FOR UNKNOWN INDICATION
     Route: 048

REACTIONS (11)
  - ABNORMAL BEHAVIOUR [None]
  - AGITATION [None]
  - ANOREXIA [None]
  - BALANCE DISORDER [None]
  - BLOOD PRESSURE INCREASED [None]
  - CONFUSIONAL STATE [None]
  - HEART RATE IRREGULAR [None]
  - HYPONATRAEMIA [None]
  - INCOHERENT [None]
  - NAUSEA [None]
  - VOMITING [None]
